FAERS Safety Report 7379919-8 (Version None)
Quarter: 2011Q1

REPORT INFORMATION
  Report Type: 
  Country: None (occurrence: None)
  Receive Date: 20110318
  Receipt Date: 20110311
  Transmission Date: 20110831
  Serious: Yes (Hospitalization)
  Sender: FDA-Public Use
  Company Number: 2011S1000318

PATIENT
  Age: 72 Year
  Sex: Male

DRUGS (4)
  1. ASPIRIN [Concomitant]
  2. LIVALO [Suspect]
     Indication: CORONARY ARTERY DISEASE
     Dosage: 2 MG; 1X; PO
     Route: 048
     Dates: start: 20100818
  3. TENORMIN [Concomitant]
  4. PLAVIX [Concomitant]

REACTIONS (2)
  - PERCUTANEOUS CORONARY INTERVENTION [None]
  - CHEST PAIN [None]
